FAERS Safety Report 4295922-9 (Version None)
Quarter: 2004Q1

REPORT INFORMATION
  Report Type: 
  Country: None (occurrence: None)
  Receive Date: 20040212
  Receipt Date: 20040130
  Transmission Date: 20041129
  Serious: Yes (Death, Life-Threatening, Hospitalization)
  Sender: FDA-Public Use
  Company Number: JP-JNJFOC-20031006272

PATIENT
  Age: 57 Year
  Sex: Female

DRUGS (9)
  1. LEUSTATIN [Suspect]
     Indication: NON-HODGKIN'S LYMPHOMA
     Dosage: 4 MG, IN 1 DAY, INTRAVENOUS DRIP
     Route: 041
     Dates: start: 20030321, end: 20030327
  2. LEUSTATIN [Suspect]
     Indication: NON-HODGKIN'S LYMPHOMA
     Dosage: 4 MG, IN 1 DAY, INTRAVENOUS DRIP
     Route: 041
     Dates: start: 20030411, end: 20030417
  3. LEUSTATIN [Suspect]
     Indication: NON-HODGKIN'S LYMPHOMA
     Dosage: 4 MG, IN 1 DAY, INTRAVENOUS DRIP
     Route: 041
     Dates: start: 20030502, end: 20030508
  4. LEUSTATIN [Suspect]
     Indication: NON-HODGKIN'S LYMPHOMA
     Dosage: 4 MG, IN 1 DAY, INTRAVENOUS DRIP
     Route: 041
     Dates: start: 20030523, end: 20030529
  5. LEUSTATIN [Suspect]
     Indication: NON-HODGKIN'S LYMPHOMA
     Dosage: 4 MG, IN 1 DAY, INTRAVENOUS DRIP
     Route: 041
     Dates: start: 20030613, end: 20030619
  6. LEUSTATIN [Suspect]
     Indication: NON-HODGKIN'S LYMPHOMA
     Dosage: 4 MG, IN 1 DAY, INTRAVENOUS DRIP
     Route: 041
     Dates: start: 20030704, end: 20030710
  7. BASEN (UNKNOWN) VOGLIBOSE [Concomitant]
  8. FAMOTIDINE (UNKNOWN) FAMOTIDINE [Concomitant]
  9. REBAMIPIDE (REBAMIPDIE) [Concomitant]

REACTIONS (12)
  - ALANINE AMINOTRANSFERASE INCREASED [None]
  - BLOOD ALKALINE PHOSPHATASE INCREASED [None]
  - BLOOD CHOLESTEROL INCREASED [None]
  - BONE MARROW DEPRESSION [None]
  - BONE MARROW TUMOUR CELL INFILTRATION [None]
  - CANDIDA PNEUMONIA [None]
  - DRUG INEFFECTIVE [None]
  - GASTRIC ULCER HAEMORRHAGE [None]
  - NEOPLASM GROWTH ACCELERATED [None]
  - PANCYTOPENIA [None]
  - PNEUMONIA STAPHYLOCOCCAL [None]
  - RESPIRATORY FAILURE [None]
